FAERS Safety Report 16415698 (Version 1)
Quarter: 2019Q2

REPORT INFORMATION
  Report Type: Spontaneous
  Country: US (occurrence: US)
  Receive Date: 20190611
  Receipt Date: 20190611
  Transmission Date: 20190711
  Serious: No
  Sender: FDA-Public Use
  Company Number: US-SA-2019SA155412

PATIENT
  Age: 40 Year
  Sex: Male
  Weight: 83.9 kg

DRUGS (1)
  1. AUBAGIO [Suspect]
     Active Substance: TERIFLUNOMIDE
     Indication: MULTIPLE SCLEROSIS
     Dosage: 1 TABLET, DAILY
     Route: 048
     Dates: start: 20181013

REACTIONS (1)
  - Muscle spasms [Unknown]
